FAERS Safety Report 14942527 (Version 2)
Quarter: 2021Q2

REPORT INFORMATION
  Report Type: Other
  Country: GB (occurrence: GB)
  Receive Date: 20180528
  Receipt Date: 20210508
  Transmission Date: 20210716
  Serious: Yes (Death)
  Sender: FDA-Public Use
  Company Number: GB-ROCHE-2130070

PATIENT

DRUGS (2)
  1. CAPECITABINE. [Suspect]
     Active Substance: CAPECITABINE
     Indication: COLORECTAL CANCER
     Dosage: THE FIRST 14 DAYS OF EACH 21 DAY CYCLE
     Route: 048
  2. OXALIPLATIN. [Suspect]
     Active Substance: OXALIPLATIN
     Indication: COLORECTAL CANCER
     Dosage: ON DAY 1 OVER 2 HOURS
     Route: 042

REACTIONS (1)
  - Myocardial infarction [Fatal]
